FAERS Safety Report 6159581-2 (Version None)
Quarter: 2009Q2

REPORT INFORMATION
  Report Type: 
  Country: None (occurrence: None)
  Receive Date: 20090415
  Receipt Date: 20090415
  Transmission Date: 20091009
  Serious: Yes (Life-Threatening, Other)
  Sender: FDA-Public Use
  Company Number: None

PATIENT
  Age: 52 Year
  Sex: Female
  Weight: 71.2147 kg

DRUGS (4)
  1. LEVETIRACETAM [Suspect]
     Indication: CONVULSION
     Dosage: 2 TABLETS TWICE A DAY MOUTH
     Route: 048
     Dates: start: 20090319, end: 20090413
  2. ALTACE [Concomitant]
  3. SYNTHROID [Concomitant]
  4. PHENOBARBITAL [Concomitant]

REACTIONS (14)
  - ABNORMAL SENSATION IN EYE [None]
  - ANGER [None]
  - ANXIETY [None]
  - CONVULSION [None]
  - DEPRESSED MOOD [None]
  - EAR DISCOMFORT [None]
  - FATIGUE [None]
  - FEAR [None]
  - HEADACHE [None]
  - NERVOUSNESS [None]
  - PRODUCT SUBSTITUTION ISSUE [None]
  - SUICIDAL IDEATION [None]
  - TINNITUS [None]
  - TREMOR [None]
